FAERS Safety Report 7101766-2 (Version None)
Quarter: 2010Q4

REPORT INFORMATION
  Report Type: 
  Country: None (occurrence: None)
  Receive Date: 20101115
  Receipt Date: 20101104
  Transmission Date: 20110411
  Serious: Yes (Other)
  Sender: FDA-Public Use
  Company Number: US-TYCO HEALTHCARE/MALLINCKRODT-T201002245

PATIENT
  Age: 77 Year

DRUGS (3)
  1. OPTIRAY 350 [Suspect]
     Indication: ARTERIOGRAM CORONARY
     Dosage: 122.59 UNK, UNK
     Route: 042
  2. NORMAL SALINE [Concomitant]
     Indication: PREMEDICATION
     Dosage: 3 ML/KG OVER 1 HR IMMEDIATELY PRIOR TO CONTRAST EXPSOSURE
     Route: 042
  3. NORMAL SALINE [Concomitant]
     Dosage: 1 ML/KG FOR 6 HRS AFTER PROCEDURE
     Route: 042

REACTIONS (1)
  - NEPHROPATHY [None]
